FAERS Safety Report 21752934 (Version 1)
Quarter: 2022Q4

REPORT INFORMATION
  Report Type: Report from Study
  Country: US (occurrence: US)
  Receive Date: 20221220
  Receipt Date: 20221220
  Transmission Date: 20230112
  Serious: Yes (Life-Threatening, Hospitalization, Other)
  Sender: FDA-Public Use
  Company Number: US-TAKEDA-US201838884

PATIENT
  Sex: Male

DRUGS (1)
  1. IDURSULFASE [Suspect]
     Active Substance: IDURSULFASE
     Indication: Mucopolysaccharidosis II
     Dosage: UNK UNK, 1/WEEK
     Route: 042
     Dates: start: 20110721

REACTIONS (5)
  - Sepsis [Recovering/Resolving]
  - Diabetes mellitus [Recovering/Resolving]
  - Loss of consciousness [Recovering/Resolving]
  - Illness [Recovered/Resolved]
  - Inappropriate schedule of product administration [Unknown]
